FAERS Safety Report 7229408-6 (Version None)
Quarter: 2011Q1

REPORT INFORMATION
  Report Type: 
  Country: None (occurrence: None)
  Receive Date: 20110117
  Receipt Date: 20110103
  Transmission Date: 20110831
  Serious: Yes (Hospitalization, Congenital Anomaly)
  Sender: FDA-Public Use
  Company Number: A0906015A

PATIENT
  Sex: Female

DRUGS (6)
  1. BENADRYL [Concomitant]
  2. TYLENOL [Concomitant]
  3. PAXIL [Suspect]
     Indication: ANXIETY DISORDER
  4. VITAMIN AND MINERAL PRENATAL SUPPLEMENT W/ FOLIC ACID CAP [Concomitant]
  5. WELLBUTRIN [Concomitant]
  6. KLONOPIN [Concomitant]

REACTIONS (4)
  - HEART DISEASE CONGENITAL [None]
  - GRUNTING [None]
  - PULMONARY HYPERTENSION [None]
  - DRUG EXPOSURE DURING PREGNANCY [None]
